FAERS Safety Report 7991179-3 (Version None)
Quarter: 2011Q4

REPORT INFORMATION
  Report Type: 
  Country: None (occurrence: None)
  Receive Date: 20111219
  Receipt Date: 20111209
  Transmission Date: 20120403
  Serious: Yes (Other)
  Sender: FDA-Public Use
  Company Number: US-GLAXOSMITHKLINE-A0814416A

PATIENT
  Age: 58 Year
  Sex: Male
  Weight: 108.6 kg

DRUGS (1)
  1. AVANDIA [Suspect]
     Indication: TYPE 2 DIABETES MELLITUS
     Dosage: 8MG UNKNOWN
     Route: 048
     Dates: start: 20070115, end: 20070201

REACTIONS (6)
  - CARDIAC DISORDER [None]
  - OEDEMA [None]
  - SCAR [None]
  - CARDIAC FAILURE CONGESTIVE [None]
  - SWELLING [None]
  - PAIN [None]
